FAERS Safety Report 8476158-4 (Version None)
Quarter: 2012Q2

REPORT INFORMATION
  Report Type: 
  Country: None (occurrence: None)
  Receive Date: 20120628
  Receipt Date: 20120619
  Transmission Date: 20120825
  Serious: Yes (Hospitalization)
  Sender: FDA-Public Use
  Company Number: US-ELI_LILLY_AND_COMPANY-US201206007068

PATIENT
  Sex: Female

DRUGS (7)
  1. MULTI-VITAMINS [Concomitant]
     Dosage: UNK
  2. HYDROCHLOROTH [Concomitant]
     Dosage: 25 MG, QD
  3. LEXAPRO [Concomitant]
     Dosage: UNK
  4. CALCIUM [Concomitant]
     Dosage: UNK
  5. FORTEO [Suspect]
     Indication: OSTEOPOROSIS
     Dosage: 20 UG, QD
     Dates: start: 20110701
  6. LOSARTAN POTASSIUM [Concomitant]
     Dosage: 10 MG, QD
  7. AMLODIPINE [Concomitant]
     Dosage: 10 MG, QD

REACTIONS (5)
  - CARDIAC DISORDER [None]
  - SYNCOPE [None]
  - FALL [None]
  - BACK PAIN [None]
  - VERTIGO [None]
